FAERS Safety Report 4579226-2 (Version None)
Quarter: 2005Q1

REPORT INFORMATION
  Report Type: 
  Country: None (occurrence: None)
  Receive Date: 20050209
  Receipt Date: 20050209
  Transmission Date: 20050727
  Serious: Yes (Other)
  Sender: FDA-Public Use
  Company Number: None

PATIENT
  Age: 54 Year
  Sex: Female
  Weight: 85.3 kg

DRUGS (12)
  1. IRESSA [Suspect]
     Indication: BREAST CANCER METASTATIC
     Dosage: 250 MG /QD/PO
     Route: 048
     Dates: start: 20050129, end: 20050204
  2. XELODA [Suspect]
     Indication: BREAST CANCER METASTATIC
     Dosage: 3500 MG/BID/PO
     Route: 048
     Dates: start: 20050129, end: 20050204
  3. CELEXA [Concomitant]
  4. PLAVIX [Concomitant]
  5. ... [Concomitant]
  6. PROTONIX [Concomitant]
  7. LEVOXYL [Concomitant]
  8. MEXILITENE [Concomitant]
  9. WELLBUTRIN [Concomitant]
  10. METHADONE [Concomitant]
  11. TRAZODONE HCL [Concomitant]
  12. DURAGESTIC PATCH [Concomitant]

REACTIONS (2)
  - ACCIDENTAL OVERDOSE [None]
  - MEDICATION ERROR [None]
